FAERS Safety Report 6313618-6 (Version None)
Quarter: 2009Q3

REPORT INFORMATION
  Report Type: 
  Country: None (occurrence: None)
  Receive Date: 20090814
  Receipt Date: 20090805
  Transmission Date: 20100115
  Serious: Yes (Hospitalization)
  Sender: FDA-Public Use
  Company Number: GXKR2009IT08361

PATIENT
  Age: 65 Year
  Sex: Male

DRUGS (3)
  1. FLUOROURACIL [Suspect]
     Indication: COLORECTAL CANCER METASTATIC
     Dosage: 12 COURSES
     Dates: start: 20070606, end: 20071206
  2. OXALIPLATIN [Suspect]
     Indication: RECTAL CANCER
     Dosage: 12 COURSES
     Dates: start: 20070606, end: 20071206
  3. FOLINIC ACID (NGX) (FOLINIC ACID) UNKNOWN [Suspect]
     Indication: RECTAL CANCER
     Dosage: 12 COURSES
     Dates: start: 20070606, end: 20071206

REACTIONS (7)
  - BLOOD PRESSURE INCREASED [None]
  - CONGESTIVE CARDIOMYOPATHY [None]
  - DILATATION VENTRICULAR [None]
  - INTERSTITIAL LUNG DISEASE [None]
  - LEFT VENTRICULAR DYSFUNCTION [None]
  - QRS AXIS ABNORMAL [None]
  - VENTRICULAR EXTRASYSTOLES [None]
